FAERS Safety Report 5296664-3 (Version None)
Quarter: 2007Q2

REPORT INFORMATION
  Report Type: 
  Country: None (occurrence: None)
  Receive Date: 20070413
  Receipt Date: 20070405
  Transmission Date: 20071010
  Serious: Yes (Death)
  Sender: FDA-Public Use
  Company Number: IT-ABBOTT-07P-083-0364212-00

PATIENT
  Sex: Male

DRUGS (2)
  1. HUMIRA [Suspect]
     Indication: PSORIATIC ARTHROPATHY
     Route: 058
     Dates: start: 20070207, end: 20070328
  2. HUMIRA [Suspect]
     Indication: PSORIASIS

REACTIONS (14)
  - CANDIDA PNEUMONIA [None]
  - CARDIO-RESPIRATORY ARREST [None]
  - CHEST X-RAY ABNORMAL [None]
  - CONDITION AGGRAVATED [None]
  - FIBRIN D DIMER INCREASED [None]
  - FUNGAEMIA [None]
  - GAIT DISTURBANCE [None]
  - HYPOKALAEMIA [None]
  - HYPONATRAEMIA [None]
  - MONOCYTOSIS [None]
  - NEUTROPENIA [None]
  - RENAL FAILURE [None]
  - SEPTIC SHOCK [None]
  - THROMBOCYTOPENIA [None]
